FAERS Safety Report 5103231-0 (Version None)
Quarter: 2006Q3

REPORT INFORMATION
  Report Type: 
  Country: None (occurrence: None)
  Receive Date: 20060913
  Receipt Date: 20060904
  Transmission Date: 20061208
  Serious: Yes (Hospitalization)
  Sender: FDA-Public Use
  Company Number: PHRM2006FR02479

PATIENT
  Age: 80 Year
  Sex: Male

DRUGS (4)
  1. TRIVASTAL [Suspect]
     Route: 048
  2. SINEMET [Suspect]
     Dosage: 4 DF DAILY
     Route: 048
  3. STABLON [Concomitant]
     Route: 048
  4. COMTAN [Suspect]
     Route: 048

REACTIONS (14)
  - ANOREXIA [None]
  - BACTERAEMIA [None]
  - BACTERIURIA [None]
  - BLADDER CATHETERISATION [None]
  - C-REACTIVE PROTEIN INCREASED [None]
  - CREATININE RENAL CLEARANCE DECREASED [None]
  - DIARRHOEA [None]
  - FLUID REPLACEMENT [None]
  - GENERAL PHYSICAL HEALTH DETERIORATION [None]
  - HAEMATURIA [None]
  - PYREXIA [None]
  - SOMNOLENCE [None]
  - SWEATING FEVER [None]
  - TACHYCARDIA [None]
